FAERS Safety Report 20381334 (Version 1)
Quarter: 2022Q1

REPORT INFORMATION
  Report Type: Spontaneous
  Country: US (occurrence: US)
  Receive Date: 20220127
  Receipt Date: 20220127
  Transmission Date: 20220423
  Serious: No
  Sender: FDA-Public Use
  Company Number: US-APOTEX-2022AP002016

PATIENT
  Sex: Male
  Weight: 67 kg

DRUGS (5)
  1. ENOXAPARIN [Suspect]
     Active Substance: ENOXAPARIN
     Indication: Product used for unknown indication
     Dosage: UNK, Q.12H
     Route: 065
     Dates: start: 20220102
  2. ATENOLOL [Concomitant]
     Active Substance: ATENOLOL
     Indication: Atrial fibrillation
     Dosage: QD
     Route: 065
  3. CARDIZEM [Concomitant]
     Active Substance: DILTIAZEM HYDROCHLORIDE
     Indication: Atrial fibrillation
     Dosage: UNK, QD
     Route: 065
  4. COUMADIN [Concomitant]
     Active Substance: WARFARIN SODIUM
     Indication: Atrial fibrillation
     Dosage: UNK, QD
     Route: 065
  5. ARMOUR THYROID [Concomitant]
     Active Substance: THYROID, PORCINE
     Indication: Thyroid disorder
     Dosage: UNK, QD
     Route: 065

REACTIONS (4)
  - Insomnia [Not Recovered/Not Resolved]
  - Abdominal discomfort [Recovering/Resolving]
  - Flatulence [Recovering/Resolving]
  - Pain in extremity [Recovered/Resolved]

NARRATIVE: CASE EVENT DATE: 20220105
